FAERS Safety Report 7563751-6 (Version None)
Quarter: 2011Q2

REPORT INFORMATION
  Report Type: 
  Country: None (occurrence: None)
  Receive Date: 20110622
  Receipt Date: 20110607
  Transmission Date: 20111010
  Serious: Yes (Other)
  Sender: FDA-Public Use
  Company Number: JP-MERCK-1105USA03978

PATIENT
  Age: 63 Year
  Sex: Male
  Weight: 76 kg

DRUGS (3)
  1. JANUVIA [Suspect]
     Indication: DIABETES MELLITUS
     Route: 048
     Dates: start: 20110302, end: 20110308
  2. ADALAT CC [Suspect]
     Indication: HYPERTENSION
     Dosage: DAILY DOSAGE UNKNOWN
     Route: 048
     Dates: start: 20110222, end: 20110311
  3. HYDROCHLOROTHIAZIDE [Suspect]
     Indication: HYPERTENSION
     Route: 048
     Dates: start: 20101207

REACTIONS (2)
  - SKIN EXFOLIATION [None]
  - ERYTHEMA [None]
